FAERS Safety Report 6256694-1 (Version None)
Quarter: 2009Q2

REPORT INFORMATION
  Report Type: 
  Country: None (occurrence: None)
  Receive Date: 20090630
  Receipt Date: 20090630
  Transmission Date: 20091009
  Serious: Yes (Other)
  Sender: FDA-Public Use
  Company Number: None

PATIENT
  Age: 3 Year
  Sex: Female
  Weight: 13.1543 kg

DRUGS (1)
  1. SINGULAIR [Suspect]
     Indication: MULTIPLE ALLERGIES
     Dosage: 4 MG CHEWABLE TABLET 1DAILY PO
     Route: 048
     Dates: start: 20080501, end: 20080501

REACTIONS (4)
  - AGGRESSION [None]
  - CRYING [None]
  - NIGHTMARE [None]
  - SCREAMING [None]
